FAERS Safety Report 15333940 (Version 1)
Quarter: 2018Q3

REPORT INFORMATION
  Report Type: Spontaneous
  Country: LV (occurrence: LV)
  Receive Date: 20180830
  Receipt Date: 20180830
  Transmission Date: 20181010
  Serious: Yes (Other)
  Sender: FDA-Public Use
  Company Number: LV-SYNTHON BV-NL01PV18_47341

PATIENT
  Age: 32 Year
  Sex: Female

DRUGS (6)
  1. METHYLPREDNISOLONE. [Suspect]
     Active Substance: METHYLPREDNISOLONE
     Indication: CHRONIC SPONTANEOUS URTICARIA
     Dosage: 16 MG, 1X/DAY
     Dates: end: 20160712
  2. OMALIZUMABUM [Concomitant]
     Indication: CHRONIC SPONTANEOUS URTICARIA
     Dosage: 300 MG, CYCLIC, 1X IN 4 WEEKS ; CYCLICAL
     Route: 058
     Dates: start: 20160610, end: 20170101
  3. LEVOCETIRIZINE DIHYDROCHLORIDE. [Suspect]
     Active Substance: LEVOCETIRIZINE DIHYDROCHLORIDE
     Indication: ANGIOEDEMA
  4. LEVOCETIRIZINE DIHYDROCHLORIDE. [Suspect]
     Active Substance: LEVOCETIRIZINE DIHYDROCHLORIDE
     Indication: CHRONIC SPONTANEOUS URTICARIA
     Dosage: 5 MG, 1X/DAY
     Dates: end: 20160712
  5. METHYLPREDNISOLONE. [Suspect]
     Active Substance: METHYLPREDNISOLONE
     Indication: ANGIOEDEMA
  6. OMALIZUMABUM [Concomitant]
     Indication: ANGIOEDEMA
     Dosage: 150 MG, UNK
     Route: 058
     Dates: start: 20160517, end: 20160517

REACTIONS (4)
  - Pain [Unknown]
  - Drug dependence [Unknown]
  - Arthralgia [Unknown]
  - Myalgia [Unknown]

NARRATIVE: CASE EVENT DATE: 201607
